FAERS Safety Report 6104578-1 (Version None)
Quarter: 2009Q1

REPORT INFORMATION
  Report Type: 
  Country: None (occurrence: None)
  Receive Date: 20090304
  Receipt Date: 20090219
  Transmission Date: 20090719
  Serious: Yes (Other)
  Sender: FDA-Public Use
  Company Number: B0561671A

PATIENT

DRUGS (6)
  1. BUSULPHAN (FORMULATION UNKNOWN) (BUSULFAN) (GENERIC) [Suspect]
     Indication: NON-HODGKIN'S LYMPHOMA
     Dosage: ORAL
     Route: 048
  2. CYCLOPHOSPHAMIDE [Suspect]
     Indication: NON-HODGKIN'S LYMPHOMA
     Dosage: INTRAVENOUS INFUSION
     Route: 042
  3. FILGRASTIM [Concomitant]
  4. HYDRATION THERAPY [Concomitant]
  5. MESNA [Concomitant]
  6. PHENYTOIN [Concomitant]

REACTIONS (1)
  - VENOOCCLUSIVE DISEASE [None]
